FAERS Safety Report 20194516 (Version 1)
Quarter: 2021Q4

REPORT INFORMATION
  Report Type: Spontaneous
  Country: CZ (occurrence: CZ)
  Receive Date: 20211216
  Receipt Date: 20211216
  Transmission Date: 20220304
  Serious: Yes (Other)
  Sender: FDA-Public Use
  Company Number: CZ-PFIZER INC-202101727336

PATIENT
  Age: 54 Year
  Sex: Male

DRUGS (4)
  1. MYLOTARG [Suspect]
     Active Substance: GEMTUZUMAB OZOGAMICIN
     Indication: Acute myeloid leukaemia
     Dosage: 5 MG ON DAY 1, 4 AND 7
     Route: 042
     Dates: start: 20201112, end: 20201118
  2. DAUNORUBICIN [Suspect]
     Active Substance: DAUNORUBICIN
     Indication: Acute myeloid leukaemia
     Dosage: 134 MG ON DAYS 1-3
     Route: 042
     Dates: start: 20201112, end: 20201114
  3. CYTARABINE [Suspect]
     Active Substance: CYTARABINE
     Indication: Acute myeloid leukaemia
     Dosage: 448 MG ON DAYS 1-7
     Route: 042
     Dates: start: 20201112, end: 20201118
  4. CYTARABINE [Suspect]
     Active Substance: CYTARABINE
     Indication: Acute myeloid leukaemia
     Dosage: 40 MG, SINGLE
     Route: 037
     Dates: start: 20201111, end: 20201111

REACTIONS (6)
  - Febrile neutropenia [Recovered/Resolved]
  - Tumour lysis syndrome [Unknown]
  - Coagulopathy [Unknown]
  - Oxygen saturation decreased [Unknown]
  - Dyspepsia [Unknown]
  - C-reactive protein increased [Unknown]

NARRATIVE: CASE EVENT DATE: 20201101
